FAERS Safety Report 7459612-3 (Version None)
Quarter: 2011Q2

REPORT INFORMATION
  Report Type: 
  Country: None (occurrence: None)
  Receive Date: 20110427
  Receipt Date: 20110421
  Transmission Date: 20111010
  Serious: Yes (Other)
  Sender: FDA-Public Use
  Company Number: 2011SP018068

PATIENT
  Sex: Male

DRUGS (12)
  1. ATENOLOL [Concomitant]
  2. SIMVASTATIN [Concomitant]
  3. SERTRALINE HYDROCHLORIDE [Concomitant]
  4. MOXONIDINE [Concomitant]
  5. SODIUM DICLOFENAC [Concomitant]
  6. MST [Concomitant]
  7. APROVEL [Concomitant]
  8. ASPIRIN [Concomitant]
  9. DEXAMETHASONE [Suspect]
     Indication: PRODUCT USED FOR UNKNOWN INDICATION
     Dosage: 0.5 MG;BID
     Dates: start: 20040101, end: 20040501
  10. TRAMADOL HCL [Concomitant]
  11. ENALAPRIL MALEATE [Concomitant]
  12. OMEPRAZOLE [Concomitant]

REACTIONS (13)
  - FEELING ABNORMAL [None]
  - FAMILY STRESS [None]
  - BLOOD LUTEINISING HORMONE DECREASED [None]
  - HYPERTENSION [None]
  - BLOOD CORTISOL DECREASED [None]
  - BLOOD TESTOSTERONE DECREASED [None]
  - ANDROGENS DECREASED [None]
  - CUSHINGOID [None]
  - LOSS OF LIBIDO [None]
  - EPISTAXIS [None]
  - MARITAL PROBLEM [None]
  - DEPRESSED MOOD [None]
  - DECREASED INTEREST [None]
